FAERS Safety Report 8352456-X (Version None)
Quarter: 2012Q2

REPORT INFORMATION
  Report Type: 
  Country: None (occurrence: None)
  Receive Date: 20120511
  Receipt Date: 20120508
  Transmission Date: 20120825
  Serious: Yes (Other)
  Sender: FDA-Public Use
  Company Number: PHHY2012IN039168

PATIENT
  Sex: Male

DRUGS (3)
  1. INSULIN [Concomitant]
     Indication: DIABETES MELLITUS
  2. SANDOSTATIN LAR [Suspect]
     Indication: NEUROENDOCRINE TUMOUR
     Dosage: 20 MG, UNK
     Dates: start: 20120201
  3. AFINITOR [Concomitant]
     Indication: NEUROENDOCRINE TUMOUR

REACTIONS (4)
  - MUCOSAL INFLAMMATION [None]
  - EPISTAXIS [None]
  - CONSTIPATION [None]
  - DIARRHOEA [None]
